FAERS Safety Report 4357914-0 (Version None)
Quarter: 2004Q2

REPORT INFORMATION
  Report Type: 
  Country: None (occurrence: None)
  Receive Date: 20040514
  Receipt Date: 20040506
  Transmission Date: 20050107
  Serious: Yes (Other)
  Sender: FDA-Public Use
  Company Number: PHBS2004BE06278

PATIENT
  Age: 44 Year
  Sex: Male

DRUGS (4)
  1. LAMISIL [Suspect]
     Indication: NAIL TINEA
     Dosage: 250 MG/DAY
     Route: 048
     Dates: start: 20040201, end: 20040401
  2. ISOTEN [Concomitant]
  3. ELTHYRONE [Concomitant]
  4. PARIET [Concomitant]

REACTIONS (1)
  - VERTIGO [None]
